FAERS Safety Report 7818372-4 (Version None)
Quarter: 2011Q4

REPORT INFORMATION
  Report Type: 
  Country: None (occurrence: None)
  Receive Date: 20111017
  Receipt Date: 20111007
  Transmission Date: 20120403
  Serious: Yes (Hospitalization)
  Sender: FDA-Public Use
  Company Number: US-ASTRAZENECA-2011SE43417

PATIENT
  Age: 63 Year
  Sex: Female
  Weight: 47.6 kg

DRUGS (8)
  1. ZOMIG [Suspect]
     Indication: HEADACHE
     Route: 048
  2. ZOMIG [Suspect]
     Indication: MIGRAINE
     Route: 048
  3. INDERAL [Concomitant]
  4. LISINOPRIL [Concomitant]
  5. MAXALT [Concomitant]
  6. FURENOL NO 3 [Concomitant]
  7. ZOMIG [Suspect]
     Dosage: 5 MG PRN
     Route: 048
     Dates: start: 20040101
  8. ZOMIG [Suspect]
     Dosage: 5 MG PRN
     Route: 048
     Dates: start: 20040101

REACTIONS (8)
  - DEHYDRATION [None]
  - HYPERTENSION [None]
  - ROAD TRAFFIC ACCIDENT [None]
  - MIGRAINE [None]
  - VOMITING [None]
  - MALAISE [None]
  - NAUSEA [None]
  - DRUG DOSE OMISSION [None]
